FAERS Safety Report 7904643-X (Version None)
Quarter: 2011Q4

REPORT INFORMATION
  Report Type: 
  Country: None (occurrence: None)
  Receive Date: 20111109
  Receipt Date: 20111028
  Transmission Date: 20120403
  Serious: Yes (Hospitalization, Congenital Anomaly)
  Sender: FDA-Public Use
  Company Number: US-GLAXOSMITHKLINE-A0950439A

PATIENT
  Sex: Female

DRUGS (8)
  1. PAXIL CR [Suspect]
     Indication: PRODUCT USED FOR UNKNOWN INDICATION
     Route: 064
  2. VALTREX [Concomitant]
     Dates: start: 20050901
  3. ZOFRAN [Concomitant]
     Dates: start: 20050401
  4. METOCLOPRAMIDE [Concomitant]
  5. BUSPIRONE [Concomitant]
  6. PROMETHAZINE [Concomitant]
  7. ADVAIR DISKUS 100/50 [Concomitant]
     Dates: start: 20050901
  8. OXYCODONE HCL AND ACETAMINOPHEN [Concomitant]
     Dates: start: 20050901

REACTIONS (2)
  - FOETAL EXPOSURE DURING PREGNANCY [None]
  - TALIPES [None]
